FAERS Safety Report 5963009-2 (Version None)
Quarter: 2008Q4

REPORT INFORMATION
  Report Type: 
  Country: None (occurrence: None)
  Receive Date: 20081124
  Receipt Date: 20081114
  Transmission Date: 20090506
  Serious: Yes (Hospitalization)
  Sender: FDA-Public Use
  Company Number: US-BIOGENIDEC-2008BI030568

PATIENT
  Age: 27 Year
  Sex: Female

DRUGS (3)
  1. TYSABRI [Suspect]
     Indication: MULTIPLE SCLEROSIS
     Route: 042
     Dates: start: 20080423
  2. SOLU-MEDROL [Concomitant]
     Indication: MULTIPLE SCLEROSIS RELAPSE
  3. BACLOFEN [Concomitant]
     Indication: MUSCLE SPASMS
     Route: 048

REACTIONS (1)
  - RENAL FAILURE ACUTE [None]
